FAERS Safety Report 7421997-1 (Version None)
Quarter: 2011Q2

REPORT INFORMATION
  Report Type: 
  Country: None (occurrence: None)
  Receive Date: 20110418
  Receipt Date: 20110405
  Transmission Date: 20111010
  Serious: Yes (Hospitalization)
  Sender: FDA-Public Use
  Company Number: US-ELI_LILLY_AND_COMPANY-US201006006094

PATIENT
  Sex: Female

DRUGS (18)
  1. LISINOPRIL [Concomitant]
  2. HYDROCHLOROTHIAZIDE [Concomitant]
  3. FORTEO [Suspect]
     Indication: OSTEOPOROSIS
     Dosage: 20 UG, DAILY (1/D)
  4. FORTEO [Suspect]
     Dosage: 20 UG, DAILY (1/D)
  5. CYMBALTA [Concomitant]
  6. OMEPRAZOLE [Concomitant]
  7. VITAMIN D [Concomitant]
  8. GLYCERIN [Concomitant]
  9. COUMADIN [Concomitant]
     Dosage: UNK
     Dates: start: 19720101
  10. CENTRUM /00554501/ [Concomitant]
  11. THYROID TAB [Concomitant]
  12. ASPIRIN [Concomitant]
  13. CRESTOR [Concomitant]
  14. VITAMIN B-12 [Concomitant]
  15. FORTEO [Suspect]
     Dosage: 20 UG, QD
  16. SUCRALFATE [Concomitant]
     Indication: IRRITABLE BOWEL SYNDROME
  17. MUSCLE RELAXANTS [Concomitant]
  18. PREDNISONE [Concomitant]

REACTIONS (4)
  - OEDEMA PERIPHERAL [None]
  - DIZZINESS [None]
  - MALAISE [None]
  - THROMBOSIS [None]
